FAERS Safety Report 8155444-1 (Version None)
Quarter: 2012Q1

REPORT INFORMATION
  Report Type: 
  Country: None (occurrence: None)
  Receive Date: 20120206
  Receipt Date: 20120123
  Transmission Date: 20120608
  Serious: No
  Sender: FDA-Public Use
  Company Number: CA-145250

PATIENT
  Sex: Female
  Weight: 59 kg

DRUGS (13)
  1. NITROLINGUAL [Concomitant]
  2. CRESTOR [Concomitant]
  3. RAMIPRIL [Concomitant]
  4. DOMPERIDONE [Concomitant]
  5. PANTOPRAZOLE [Concomitant]
  6. DIAZEPAM [Concomitant]
  7. WINRHO SDF [Suspect]
     Indication: IDIOPATHIC THROMBOCYTOPENIC PURPURA
     Dosage: SEE IMAGE
     Route: 042
     Dates: start: 20110831, end: 20110831
  8. WINRHO SDF [Suspect]
     Indication: IDIOPATHIC THROMBOCYTOPENIC PURPURA
     Dosage: SEE IMAGE
     Route: 042
     Dates: start: 20111012, end: 20111116
  9. WINRHO SDF [Suspect]
     Indication: IDIOPATHIC THROMBOCYTOPENIC PURPURA
     Dosage: SEE IMAGE
     Route: 042
     Dates: start: 20111130
  10. WINRHO SDF [Suspect]
     Indication: IDIOPATHIC THROMBOCYTOPENIC PURPURA
     Dosage: SEE IMAGE
     Route: 042
     Dates: start: 20110808, end: 20110808
  11. WINRHO SDF [Suspect]
     Indication: IDIOPATHIC THROMBOCYTOPENIC PURPURA
     Dosage: SEE IMAGE
     Route: 042
     Dates: start: 20110907, end: 20110921
  12. WINRHO SDF [Suspect]
     Indication: IDIOPATHIC THROMBOCYTOPENIC PURPURA
     Dosage: SEE IMAGE
     Route: 042
     Dates: start: 20110906, end: 20110906
  13. VOLTAREN [Concomitant]

REACTIONS (10)
  - BLOOD PRESSURE INCREASED [None]
  - PLATELET COUNT DECREASED [None]
  - INFUSION RELATED REACTION [None]
  - ABDOMINAL PAIN UPPER [None]
  - DRUG INTOLERANCE [None]
  - TRANSFUSION REACTION [None]
  - DRUG PRESCRIBING ERROR [None]
  - FEELING HOT [None]
  - BLOOD URINE PRESENT [None]
  - DYSPNOEA [None]
